FAERS Safety Report 7168187-8 (Version None)
Quarter: 2010Q4

REPORT INFORMATION
  Report Type: 
  Country: None (occurrence: None)
  Receive Date: 20101216
  Receipt Date: 20101208
  Transmission Date: 20110411
  Serious: Yes (Other)
  Sender: FDA-Public Use
  Company Number: MY-PFIZER INC-2010167695

PATIENT
  Age: 20 Year
  Sex: Male

DRUGS (5)
  1. DILANTIN [Suspect]
     Indication: CONVULSION
     Dosage: 225 MG, SINGLE
     Route: 042
     Dates: start: 20100401
  2. DITOIN [Suspect]
     Indication: CONVULSION
     Dosage: 75 MG, 1X/DAY
     Route: 048
  3. RANITIDINE [Concomitant]
     Dosage: UNK
  4. AMOXYCILLIN/CLAVULANIC ACID [Concomitant]
     Dosage: UNK
  5. CEFTRIAXONE [Concomitant]
     Dosage: UNK

REACTIONS (4)
  - BLOOD CREATININE INCREASED [None]
  - EOSINOPHILIA [None]
  - PROTEINURIA [None]
  - PYREXIA [None]
